FAERS Safety Report 6409573-0 (Version None)
Quarter: 2009Q4

REPORT INFORMATION
  Report Type: 
  Country: None (occurrence: None)
  Receive Date: 20091020
  Receipt Date: 20091020
  Transmission Date: 20100525
  Serious: No
  Sender: FDA-Public Use
  Company Number: None

PATIENT
  Sex: Female
  Weight: 43.5453 kg

DRUGS (1)
  1. MIGRAZONE CAPSULES [Suspect]
     Indication: MIGRAINE
     Dosage: TAKE 2 CAPSULES, THEN REPEAT EVERY HOUR UNTIL PAIN DISAPPEARS
     Dates: start: 20090920

REACTIONS (3)
  - DIZZINESS [None]
  - FATIGUE [None]
  - VISION BLURRED [None]
